FAERS Safety Report 8881153 (Version 1)
Quarter: 2012Q4

REPORT INFORMATION
  Report Type: 
  Country: US (occurrence: US)
  Receive Date: 20121031
  Receipt Date: 20121031
  Transmission Date: 20130627
  Serious: Yes (Other)
  Sender: FDA-Public Use
  Company Number: US-ASTRAZENECA-2012SE79898

PATIENT
  Age: 72 Year
  Sex: Male
  Weight: 117.9 kg

DRUGS (6)
  1. SYMBICORT [Suspect]
     Indication: CHRONIC OBSTRUCTIVE PULMONARY DISEASE
     Dosage: TWO PUFFS TWO TIMES A DAY
     Route: 055
     Dates: start: 2006
  2. RANITIDINE [Concomitant]
     Indication: ULCER
     Dates: start: 1995
  3. ISOSORBIDE [Concomitant]
     Indication: MYOCARDIAL INFARCTION
     Route: 048
     Dates: start: 1995
  4. METOPROLOL TARTRATE [Concomitant]
     Indication: MYOCARDIAL INFARCTION
     Dosage: 50 MG ONE HALF, BID
     Route: 048
     Dates: start: 1995
  5. VYTORIN [Concomitant]
     Indication: BLOOD CHOLESTEROL ABNORMAL
     Dosage: 10/40 MG , DAILY
     Route: 048
     Dates: start: 2001
  6. FLOMAX [Concomitant]
     Indication: URINARY TRACT DISORDER
     Route: 048
     Dates: start: 2011

REACTIONS (4)
  - Adult T-cell lymphoma/leukaemia [Unknown]
  - Prostatic disorder [Unknown]
  - Prostatomegaly [Unknown]
  - Prostatic specific antigen increased [Unknown]
